FAERS Safety Report 21658678 (Version 1)
Quarter: 2022Q4

REPORT INFORMATION
  Report Type: Spontaneous
  Country: RO (occurrence: RO)
  Receive Date: 20221129
  Receipt Date: 20221129
  Transmission Date: 20230113
  Serious: Yes (Other)
  Sender: FDA-Public Use
  Company Number: RO-TAKEDA-2022TUS089504

PATIENT
  Age: 53 Year
  Sex: Male

DRUGS (1)
  1. HYQVIA [Suspect]
     Active Substance: HUMAN IMMUNOGLOBULIN G\HYALURONIDASE RECOMBINANT HUMAN
     Indication: Immunodeficiency common variable
     Dosage: 40 GRAM, MONTHLY
     Route: 058
     Dates: start: 202204

REACTIONS (7)
  - Coeliac disease [Unknown]
  - Rectal haemorrhage [Unknown]
  - Frequent bowel movements [Unknown]
  - Weight decreased [Unknown]
  - Intestinal mass [Unknown]
  - Lymphadenitis [Unknown]
  - Colorectal adenoma [Unknown]

NARRATIVE: CASE EVENT DATE: 20220701
